FAERS Safety Report 6568200-2 (Version None)
Quarter: 2010Q1

REPORT INFORMATION
  Report Type: 
  Country: None (occurrence: None)
  Receive Date: 20100203
  Receipt Date: 20100122
  Transmission Date: 20100710
  Serious: Yes (Hospitalization)
  Sender: FDA-Public Use
  Company Number: DE-ROCHE-665428

PATIENT
  Sex: Female
  Weight: 82 kg

DRUGS (9)
  1. BEVACIZUMAB [Suspect]
     Indication: BREAST CANCER
     Dosage: DAY 1 Q DAY 21 FOR 8 CYCLES.
     Route: 042
     Dates: start: 20090612, end: 20091016
  2. EPIRUBICIN [Suspect]
     Indication: BREAST CANCER
     Dosage: DAY 1 Q DAY 21 FOR 4 CYCLES
     Route: 042
     Dates: start: 20090612, end: 20090814
  3. CYCLOPHOSPHAMIDE [Suspect]
     Indication: BREAST CANCER
     Dosage: DAY 1 Q DAY 21 FOR 4 CYCLES
     Route: 042
     Dates: start: 20090612, end: 20090814
  4. DOCETAXEL [Suspect]
     Indication: BREAST CANCER
     Dosage: DAY 1 Q DAY 21 FOR 4 CYCLES.
     Route: 042
     Dates: start: 20090904, end: 20091016
  5. OLMETEC [Concomitant]
     Dates: start: 20060101
  6. METOHEXAL [Concomitant]
     Dates: start: 19950101
  7. AUGMENTIN '125' [Concomitant]
     Dates: start: 20091026, end: 20091029
  8. RULID [Concomitant]
     Dates: start: 20091103, end: 20091112
  9. FLUCONAZOLE [Concomitant]
     Dosage: DRUG NAME: 'DIFENCAN'
     Dates: start: 20091101, end: 20091103

REACTIONS (2)
  - FEBRILE INFECTION [None]
  - PULMONARY FIBROSIS [None]
